FAERS Safety Report 25255805 (Version 1)
Quarter: 2025Q2

REPORT INFORMATION
  Report Type: Spontaneous
  Country: US (occurrence: US)
  Receive Date: 20250430
  Receipt Date: 20250430
  Transmission Date: 20250717
  Serious: Yes (Other)
  Sender: BRECKENRIDGE PHARMACEUTICAL, INC.
  Company Number: US-Breckenridge Pharmaceutical, Inc.-2175867

PATIENT
  Sex: Female

DRUGS (1)
  1. DULOXETINE HYDROCHLORIDE [Suspect]
     Active Substance: DULOXETINE HYDROCHLORIDE
     Indication: Fibromyalgia

REACTIONS (9)
  - Drug ineffective [Unknown]
  - Drug withdrawal syndrome [Unknown]
  - Intrusive thoughts [Unknown]
  - Depression [Unknown]
  - Confusional state [Unknown]
  - Insomnia [Unknown]
  - Tremor [Unknown]
  - Night sweats [Unknown]
  - Product substitution issue [Unknown]
